FAERS Safety Report 9871462 (Version 2)
Quarter: 2014Q1

REPORT INFORMATION
  Report Type: Spontaneous
  Country: US (occurrence: US)
  Receive Date: 20140205
  Receipt Date: 20140220
  Transmission Date: 20141002
  Serious: Yes (Other)
  Sender: FDA-Public Use
  Company Number: US-BRISTOL-MYERS SQUIBB COMPANY-20070876

PATIENT
  Age: 56 Year
  Sex: Female
  Weight: 77.55 kg

DRUGS (4)
  1. BYETTA PEN DISPOSABLE [Suspect]
     Indication: TYPE 2 DIABETES MELLITUS
     Dosage: INITIALLY 5MCG/2/1/D,5MCG TWICE DAILY DOSE ON AND OFF SINCE 2006, RESTARTED AT 10 MCG BID:20JAN2014.
     Route: 058
     Dates: start: 2006
  2. METFORMIN [Concomitant]
  3. GLIMEPIRIDE [Concomitant]
  4. HYDROCHLOROTHIAZIDE [Concomitant]

REACTIONS (7)
  - Thyroid neoplasm [Unknown]
  - Drug ineffective [Unknown]
  - Nausea [Unknown]
  - Pain [Unknown]
  - Headache [Unknown]
  - Vomiting [Unknown]
  - Decreased appetite [Unknown]
